FAERS Safety Report 10678147 (Version 1)
Quarter: 2014Q4

REPORT INFORMATION
  Report Type: Spontaneous
  Country: FI (occurrence: None)
  Receive Date: 20141223
  Receipt Date: 20141223
  Transmission Date: 20150529
  Serious: Yes (Life-Threatening, Other)
  Sender: FDA-Public Use
  Company Number: 2014EDG00020

PATIENT
  Age: 58 Year
  Sex: Male

DRUGS (2)
  1. KETIPINOR (QUETIAPINE) [Suspect]
     Active Substance: QUETIAPINE
     Dates: start: 2010
  2. SERONIL (FLUOXETINE) 20 MG (FLUOXETINE) UKNOWN [Suspect]
     Active Substance: FLUOXETINE HYDROCHLORIDE
     Indication: DEPRESSION
     Dates: start: 1998

REACTIONS (6)
  - Nightmare [None]
  - Electrocardiogram QT prolonged [None]
  - Myocardial infarction [None]
  - Akathisia [None]
  - Drug withdrawal syndrome [None]
  - Insomnia [None]
